FAERS Safety Report 15321964 (Version 1)
Quarter: 2018Q3

REPORT INFORMATION
  Report Type: Spontaneous
  Country: US (occurrence: US)
  Receive Date: 20180821
  Receipt Date: 20180821
  Transmission Date: 20181010
  Serious: Yes (Other)
  Sender: FDA-Public Use
  Company Number: None

PATIENT
  Age: 65 Year
  Sex: Female
  Weight: 79.65 kg

DRUGS (16)
  1. VALSARTAN TABL 320 MG, USP NDC 43547?370?09, EXP 09/2019, LOT344F10722 [Suspect]
     Active Substance: VALSARTAN
     Indication: HYPERTENSION
     Dosage: ?          QUANTITY:90 TABLET(S);?
     Route: 048
     Dates: start: 20180507, end: 20180720
  2. ZETIA [Concomitant]
     Active Substance: EZETIMIBE
  3. CRESTOR [Concomitant]
     Active Substance: ROSUVASTATIN CALCIUM
  4. DULERA [Concomitant]
     Active Substance: FORMOTEROL FUMARATE DIHYDRATE\MOMETASONE FUROATE
  5. CALCIUM [Concomitant]
     Active Substance: CALCIUM
  6. TOPAMAX [Concomitant]
     Active Substance: TOPIRAMATE
  7. ASPIRIN. [Concomitant]
     Active Substance: ASPIRIN
  8. CARVEDILOL. [Concomitant]
     Active Substance: CARVEDILOL
  9. LOSARTAN POTASSIUM. [Concomitant]
     Active Substance: LOSARTAN POTASSIUM
  10. SAXENDA [Concomitant]
     Active Substance: LIRAGLUTIDE
  11. PEPCID [Concomitant]
     Active Substance: FAMOTIDINE
  12. SYNTHROID [Concomitant]
     Active Substance: LEVOTHYROXINE SODIUM
  13. ISOSORBIDE. [Concomitant]
     Active Substance: ISOSORBIDE
  14. ALLOPURINOL. [Concomitant]
     Active Substance: ALLOPURINOL
  15. GABAPENTIN. [Concomitant]
     Active Substance: GABAPENTIN
  16. VITAMIN D3 [Concomitant]
     Active Substance: CHOLECALCIFEROL

REACTIONS (4)
  - Drug dispensing error [None]
  - Expired product administered [None]
  - Renal failure [None]
  - Product use issue [None]

NARRATIVE: CASE EVENT DATE: 20180507
